FAERS Safety Report 5880108-4 (Version None)
Quarter: 2008Q3

REPORT INFORMATION
  Report Type: 
  Country: None (occurrence: None)
  Receive Date: 20080911
  Receipt Date: 20080911
  Transmission Date: 20090109
  Serious: Yes (Hospitalization)
  Sender: FDA-Public Use
  Company Number: None

PATIENT
  Sex: Female
  Weight: 47.8 kg

DRUGS (2)
  1. CARBOPLATIN [Suspect]
     Dosage: 595 MG
     Dates: end: 20071213
  2. TAXOL [Suspect]
     Dosage: 260 MG
     Dates: end: 20071212

REACTIONS (6)
  - ABDOMINAL ADHESIONS [None]
  - ABDOMINAL PAIN [None]
  - ASCITES [None]
  - ILEUS [None]
  - INTESTINAL ISCHAEMIA [None]
  - INTESTINAL OBSTRUCTION [None]
